FAERS Safety Report 20120144 (Version 3)
Quarter: 2022Q1

REPORT INFORMATION
  Report Type: Spontaneous
  Country: GB (occurrence: GB)
  Receive Date: 20211126
  Receipt Date: 20220106
  Transmission Date: 20220423
  Serious: Yes (Death, Hospitalization, Disabling, Other)
  Sender: FDA-Public Use
  Company Number: None

PATIENT
  Age: 76 Year
  Sex: Male
  Weight: 69 kg

DRUGS (21)
  1. TACROLIMUS [Interacting]
     Active Substance: TACROLIMUS
     Indication: Renal transplant
     Dosage: TACROLIMUS 1.5 MG TWICE A DAY
     Dates: start: 20100127, end: 20180130
  2. TACROLIMUS [Interacting]
     Active Substance: TACROLIMUS
     Indication: Renal transplant
  3. BISOPROLOL [Suspect]
     Active Substance: BISOPROLOL
  4. CEFUROXIME [Suspect]
     Active Substance: CEFUROXIME
     Dates: start: 20180131
  5. CLARITHROMYCIN [Interacting]
     Active Substance: CLARITHROMYCIN
     Indication: Pneumonia
     Dates: start: 20180127, end: 20180131
  6. OMEPRAZOLE [Suspect]
     Active Substance: OMEPRAZOLE
     Indication: Product used for unknown indication
  7. ALFACALCIDOL [Concomitant]
     Active Substance: ALFACALCIDOL
     Dosage: ALFACALCIDOL 500NG OD PO O/A
  8. ALLOPURINOL [Concomitant]
     Active Substance: ALLOPURINOL
  9. BETAHISTINE [Concomitant]
     Active Substance: BETAHISTINE
  10. CHOLECALCIFEROL [Concomitant]
     Active Substance: CHOLECALCIFEROL
     Dosage: CALCIUM CARBONATE + COLECALCIFEROL 20NG DAILY;
  11. DEXTROSE [Concomitant]
     Active Substance: DEXTROSE
     Dates: start: 20180130
  12. DOXYCYCLINE [Concomitant]
     Active Substance: DOXYCYCLINE
  13. EPLERENONE [Concomitant]
     Active Substance: EPLERENONE
     Dates: end: 20180130
  14. FUROSEMIDE [Concomitant]
     Active Substance: FUROSEMIDE
     Dates: end: 20180130
  15. GLICLAZIDE [Concomitant]
     Active Substance: GLICLAZIDE
  16. GLUCAGON [Concomitant]
     Active Substance: GLUCAGON
     Dates: start: 20180130
  17. NITROGLYCERIN [Concomitant]
     Active Substance: NITROGLYCERIN
  18. HYDROCORTISONE [Concomitant]
     Active Substance: HYDROCORTISONE
     Dates: end: 20180201
  19. PREDNISOLONE [Concomitant]
     Active Substance: PREDNISOLONE
     Dosage: INCREASE PREDNISOLONE TO 10 MG FOR 5 DAYS; ;
     Dates: start: 20180127
  20. ALBUTEROL [Concomitant]
     Active Substance: ALBUTEROL
  21. SENNA [Concomitant]
     Active Substance: SENNA LEAF\SENNOSIDES\SENNOSIDES A AND B
     Dosage: SENNA 15MG ON PO O/A

REACTIONS (6)
  - Drug interaction [Fatal]
  - Cardiac failure congestive [Fatal]
  - Myocardial ischaemia [Fatal]
  - Pneumonia [Fatal]
  - Acute kidney injury [Fatal]
  - Oesophageal carcinoma [Fatal]

NARRATIVE: CASE EVENT DATE: 20180127
